FAERS Safety Report 6128360-4 (Version None)
Quarter: 2009Q1

REPORT INFORMATION
  Report Type: 
  Country: None (occurrence: None)
  Receive Date: 20090323
  Receipt Date: 20090319
  Transmission Date: 20090719
  Serious: Yes (Death, Hospitalization)
  Sender: FDA-Public Use
  Company Number: B0566137A

PATIENT
  Age: 95 Year
  Sex: Male

DRUGS (7)
  1. CARVEDILOL [Suspect]
     Indication: HYPERTENSION
     Dosage: 6.25MG TWICE PER DAY
     Route: 048
     Dates: start: 20000101, end: 20081201
  2. DIGITOXIN [Suspect]
     Indication: CARDIAC FAILURE CHRONIC
     Dosage: .01MG PER DAY
     Route: 048
     Dates: start: 20000101, end: 20081201
  3. ASPIRIN [Concomitant]
     Route: 065
     Dates: start: 20000101, end: 20081208
  4. FUROSEMID [Concomitant]
     Route: 065
     Dates: start: 20000101, end: 20081201
  5. GLIBENCLAMIDE [Concomitant]
     Route: 065
     Dates: start: 20000101
  6. HYDROCHLOROTHIAZIDE + RAMIPRIL [Concomitant]
     Route: 065
     Dates: start: 20000101, end: 20081203
  7. TORASEMIDE [Concomitant]
     Route: 065
     Dates: start: 20000101, end: 20081201

REACTIONS (15)
  - ANAEMIA [None]
  - BLOOD CREATININE INCREASED [None]
  - BRADYARRHYTHMIA [None]
  - BRAIN NATRIURETIC PEPTIDE INCREASED [None]
  - DIVERTICULITIS [None]
  - DIZZINESS [None]
  - DUODENAL ULCER [None]
  - DYSPNOEA [None]
  - ELDERLY [None]
  - GENERAL PHYSICAL HEALTH DETERIORATION [None]
  - MITRAL VALVE INCOMPETENCE [None]
  - MULTI-ORGAN FAILURE [None]
  - MULTIMORBIDITY [None]
  - PROTHROMBIN TIME PROLONGED [None]
  - PULMONARY HYPERTENSION [None]
